FAERS Safety Report 6035261-9 (Version None)
Quarter: 2009Q1

REPORT INFORMATION
  Report Type: 
  Country: None (occurrence: None)
  Receive Date: 20090109
  Receipt Date: 20081224
  Transmission Date: 20090719
  Serious: Yes (Other)
  Sender: FDA-Public Use
  Company Number: PAR_02446_2008

PATIENT
  Sex: Female

DRUGS (8)
  1. IBUPROFEN TABLETS [Suspect]
     Indication: OSTEOARTHRITIS
     Dosage: (2 DOSE FORMS IN THE MORNING AND 1 DOSE FORM IN THE EVENING ORAL)
     Route: 048
     Dates: end: 20081028
  2. AMILORIDE 5 MG [Suspect]
     Indication: BLOOD PRESSURE
     Dosage: (2.5 MG ORAL)
     Route: 048
     Dates: start: 20060208, end: 20081028
  3. NAPROXEN [Suspect]
     Indication: OSTEOARTHRITIS
     Dosage: (660 MG, [2 DOSE FORMS IN THE MORNING AND 1 DOSE FORM IN THE EVENING] ORAL)
     Route: 048
     Dates: end: 20081028
  4. RECLAST [Suspect]
     Indication: OSTEOPOROSIS
     Dosage: (DF, FOR 1 WEEK 2 DAYS INTRAVENOUS (NOT OTHERWISE SPECIFIED)
     Route: 042
     Dates: start: 20081020, end: 20081028
  5. INDAPAMIDE [Suspect]
     Indication: BLOOD PRESSURE INCREASED
     Dosage: (1.25 MG QD ORAL)
     Route: 048
     Dates: start: 20060208, end: 20081028
  6. DIOVAN /01319601/ [Concomitant]
  7. LOVASTATIN [Concomitant]
  8. FOSAMAX [Concomitant]

REACTIONS (3)
  - BLOOD CREATININE DECREASED [None]
  - RENAL FAILURE [None]
  - URINARY TRACT INFECTION [None]
